FAERS Safety Report 6100543-9 (Version None)
Quarter: 2009Q1

REPORT INFORMATION
  Report Type: 
  Country: None (occurrence: None)
  Receive Date: 20090303
  Receipt Date: 20090218
  Transmission Date: 20090719
  Serious: Yes (Other)
  Sender: FDA-Public Use
  Company Number: US-SANOFI-SYNTHELABO-A03200900719

PATIENT
  Sex: Female

DRUGS (3)
  1. PLAVIX [Suspect]
     Indication: CATHETERISATION CARDIAC
     Route: 048
     Dates: start: 20080201
  2. PLAVIX [Suspect]
     Route: 048
     Dates: start: 20080331
  3. PLAVIX [Suspect]
     Route: 048

REACTIONS (5)
  - ARTERIAL OCCLUSIVE DISEASE [None]
  - DIZZINESS [None]
  - EPISTAXIS [None]
  - OVERDOSE [None]
  - SINUS HEADACHE [None]
